FAERS Safety Report 12954689 (Version 7)
Quarter: 2017Q1

REPORT INFORMATION
  Report Type: Report from Study
  Country: None (occurrence: CA)
  Receive Date: 20161118
  Receipt Date: 20170215
  Transmission Date: 20170428
  Serious: Yes (Hospitalization, Other)
  Sender: FDA-Public Use
  Company Number: CA-ABBVIE-16K-028-1782349-00

PATIENT
  Sex: Male

DRUGS (1)
  1. HUMIRA [Suspect]
     Active Substance: ADALIMUMAB
     Indication: COLITIS ULCERATIVE
     Route: 058
     Dates: start: 20160414, end: 20161212

REACTIONS (6)
  - Cystitis [Recovered/Resolved]
  - Cystitis [Unknown]
  - Intestinal obstruction [Recovered/Resolved]
  - Urinary tract infection [Not Recovered/Not Resolved]
  - Urine abnormality [Unknown]
  - Dysuria [Unknown]

NARRATIVE: CASE EVENT DATE: 2016
